FAERS Safety Report 21666342 (Version 1)
Quarter: 2022Q4

REPORT INFORMATION
  Report Type: Spontaneous
  Country: FR (occurrence: FR)
  Receive Date: 20221201
  Receipt Date: 20221201
  Transmission Date: 20230112
  Serious: Yes (Other)
  Sender: FDA-Public Use
  Company Number: None

PATIENT
  Age: 77 Year
  Sex: Male

DRUGS (3)
  1. ETOPOSIDE [Suspect]
     Active Substance: ETOPOSIDE
     Indication: Metastatic bronchial carcinoma
     Dosage: UNIT DOSE : 150 MG , FREQUENCY TIME : 1 CYCLICAL , THERAPY END DATE : NASK
     Dates: start: 20220809
  2. CARBOPLATIN [Suspect]
     Active Substance: CARBOPLATIN
     Indication: Metastatic bronchial carcinoma
     Dosage: UNIT DOSE : 450 MG , FREQUENCY TIME : 1 CYCLICAL , THERAPY END DATE : NASK
     Dates: start: 20220809
  3. IMFINZI [Suspect]
     Active Substance: DURVALUMAB
     Indication: Metastatic bronchial carcinoma
     Dosage: SOLUTION, FORM STRENGTH : 50 MG/ML, INTRAVENOUS INFUSION , UNIT DOSE : 1500 MG , FREQUENCY TIME : 1
     Dates: start: 20220809

REACTIONS (3)
  - Decreased appetite [Not Recovered/Not Resolved]
  - Nausea [Not Recovered/Not Resolved]
  - Weight decreased [Not Recovered/Not Resolved]

NARRATIVE: CASE EVENT DATE: 20221007
